FAERS Safety Report 20968616 (Version 1)
Quarter: 2022Q2

REPORT INFORMATION
  Report Type: Spontaneous
  Country: US (occurrence: US)
  Receive Date: 20220616
  Receipt Date: 20220616
  Transmission Date: 20220720
  Serious: Yes (Hospitalization)
  Sender: FDA-Public Use
  Company Number: US-AMNEAL PHARMACEUTICALS-2022-AMRX-01760

PATIENT
  Age: 68 Year
  Sex: Male
  Weight: 96.6 kg

DRUGS (9)
  1. METHOTREXATE [Suspect]
     Active Substance: METHOTREXATE
     Indication: Rheumatoid arthritis
     Dosage: 15 MILLIGRAM, 1 /WEEK
     Route: 048
     Dates: start: 20040209
  2. XELJANZ [Suspect]
     Active Substance: TOFACITINIB CITRATE
     Indication: Rheumatoid arthritis
     Dosage: 5 MILLIGRAM, 2X/DAY
     Route: 048
     Dates: start: 20150325
  3. CORTISONE [Suspect]
     Active Substance: CORTISONE
     Indication: Arthralgia
     Dosage: UNK
     Route: 065
     Dates: start: 201910
  4. FINASTERIDE [Concomitant]
     Active Substance: FINASTERIDE
     Indication: Benign prostatic hyperplasia
     Dosage: UNK
     Route: 065
     Dates: start: 20131016
  5. FOLIC ACID [Concomitant]
     Active Substance: FOLIC ACID
     Indication: Rheumatoid arthritis
     Dosage: UNK
     Route: 065
     Dates: start: 19991216
  6. DICLOFENAC [Concomitant]
     Active Substance: DICLOFENAC
     Indication: Rheumatoid arthritis
     Dosage: UNK
     Route: 065
     Dates: start: 20100412
  7. LISINOPRIL [Concomitant]
     Active Substance: LISINOPRIL
     Indication: Hypertension
     Dosage: UNK
     Route: 065
     Dates: start: 20140807
  8. HYDROCODONE [Concomitant]
     Active Substance: HYDROCODONE
     Indication: Rheumatoid arthritis
     Dosage: UNK
     Route: 065
     Dates: start: 19991227
  9. PREDNISONE [Concomitant]
     Active Substance: PREDNISONE
     Indication: Arthralgia
     Dosage: UNK
     Route: 065
     Dates: start: 20190321

REACTIONS (1)
  - Arthritis infective [Recovered/Resolved]

NARRATIVE: CASE EVENT DATE: 20191031
